FAERS Safety Report 9569621 (Version 1)
Quarter: 2013Q3

REPORT INFORMATION
  Report Type: Spontaneous
  Country: US (occurrence: US)
  Receive Date: 20130930
  Receipt Date: 20130930
  Transmission Date: 20140515
  Serious: No
  Sender: FDA-Public Use
  Company Number: US-AMGEN-USASP2013066430

PATIENT
  Age: 76 Year
  Sex: Male

DRUGS (2)
  1. ENBREL [Suspect]
     Indication: PSORIASIS
     Dosage: 50 MG, QWK
     Route: 065
  2. ENBREL [Suspect]
     Indication: ARTHRITIS

REACTIONS (3)
  - Psoriasis [Not Recovered/Not Resolved]
  - Injection site pain [Recovered/Resolved]
  - Injection site swelling [Recovered/Resolved]
